FAERS Safety Report 25573646 (Version 2)
Quarter: 2025Q3

REPORT INFORMATION
  Report Type: Report from Study
  Country: US (occurrence: US)
  Receive Date: 20250717
  Receipt Date: 20250823
  Transmission Date: 20251020
  Serious: Yes (Hospitalization, Other)
  Sender: ABBVIE
  Company Number: US-ABBVIE-6372707

PATIENT
  Age: 67 Year
  Sex: Male

DRUGS (1)
  1. SKYRIZI [Suspect]
     Active Substance: RISANKIZUMAB-RZAA
     Indication: Psoriasis
     Route: 058
     Dates: start: 20250627

REACTIONS (7)
  - Cerebrovascular accident [Recovering/Resolving]
  - Skin haemorrhage [Recovering/Resolving]
  - Fall [Recovering/Resolving]
  - Confusional state [Unknown]
  - Pyrexia [Unknown]
  - Pneumonia [Recovering/Resolving]
  - Cerebral haemorrhage [Recovering/Resolving]

NARRATIVE: CASE EVENT DATE: 20250101
